FAERS Safety Report 5758619-1 (Version None)
Quarter: 2008Q2

REPORT INFORMATION
  Report Type: 
  Country: None (occurrence: None)
  Receive Date: 20080604
  Receipt Date: 20080530
  Transmission Date: 20081010
  Serious: Yes (Other)
  Sender: FDA-Public Use
  Company Number: D0057340A

PATIENT
  Age: 69 Year
  Sex: Female

DRUGS (7)
  1. AVANDAMET [Suspect]
     Dosage: 3006MG PER DAY
     Route: 048
  2. GLIMEPIRIDE [Concomitant]
     Route: 048
  3. ASPIRIN [Concomitant]
     Route: 048
  4. DIAPHAL [Concomitant]
     Route: 048
  5. XIPAMIDE [Concomitant]
     Route: 048
  6. FENOFIBRATE [Concomitant]
     Route: 048
  7. LANITOP [Concomitant]
     Route: 048

REACTIONS (1)
  - MICROCYTIC ANAEMIA [None]
